FAERS Safety Report 15815046 (Version 1)
Quarter: 2019Q1

REPORT INFORMATION
  Report Type: Spontaneous
  Country: SE (occurrence: SE)
  Receive Date: 20190112
  Receipt Date: 20190112
  Transmission Date: 20190417
  Serious: Yes (Death)
  Sender: FDA-Public Use
  Company Number: SE-TEVA-2019-SE-997855

PATIENT
  Age: 46 Year
  Sex: Female

DRUGS (6)
  1. ATARAX [Concomitant]
     Active Substance: HYDROXYZINE HYDROCHLORIDE
  2. STILNOCT [Concomitant]
     Active Substance: ZOLPIDEM TARTRATE
  3. NAPROXEN. [Concomitant]
     Active Substance: NAPROXEN
  4. NEXPLANON [Concomitant]
     Active Substance: ETONOGESTREL
  5. SERTRALINE [Suspect]
     Active Substance: SERTRALINE HYDROCHLORIDE
     Indication: DEPRESSION
     Dosage: 50 MILLIGRAM DAILY;
     Route: 048
     Dates: start: 20180907
  6. HERMOLEPSIN [Concomitant]
     Dosage: 400 MILLIGRAM DAILY;
     Route: 065

REACTIONS (1)
  - Cerebellar haemorrhage [Fatal]

NARRATIVE: CASE EVENT DATE: 201810
